FAERS Safety Report 9817969 (Version 1)
Quarter: 2013Q4

REPORT INFORMATION
  Report Type: Spontaneous
  Country: US (occurrence: None)
  Receive Date: 20131223
  Receipt Date: 20131223
  Transmission Date: 20140711
  Serious: No
  Sender: FDA-Public Use
  Company Number: 218698

PATIENT
  Age: 53 Year
  Sex: Female

DRUGS (4)
  1. PICATO GEL [Suspect]
     Indication: ACTINIC KERATOSIS
     Route: 061
     Dates: start: 20120812, end: 20120824
  2. VITAMIN D (VITAMIN D NOS) [Concomitant]
  3. CALCIUM (CALCIUM) [Concomitant]
  4. ADVIL (IBUPROFEN) [Concomitant]

REACTIONS (2)
  - Application site vesicles [None]
  - Application site erythema [None]
